FAERS Safety Report 23230425 (Version 1)
Quarter: 2023Q4

REPORT INFORMATION
  Report Type: Spontaneous
  Country: PL (occurrence: PL)
  Receive Date: 20231127
  Receipt Date: 20231127
  Transmission Date: 20240109
  Serious: Yes (Other)
  Sender: FDA-Public Use
  Company Number: None

PATIENT
  Sex: Female
  Weight: 70 kg

DRUGS (2)
  1. DICLOFENAC [Suspect]
     Active Substance: DICLOFENAC
     Indication: Sciatica
     Dosage: UNK
     Route: 048
     Dates: start: 20190301, end: 20190306
  2. MELOXICAM [Suspect]
     Active Substance: MELOXICAM
     Indication: Sciatica
     Dosage: UNK
     Route: 048
     Dates: start: 20190301, end: 20190306

REACTIONS (3)
  - Sensation of foreign body [Recovered/Resolved]
  - Angioedema [Recovered/Resolved]
  - Urticaria [Recovered/Resolved]

NARRATIVE: CASE EVENT DATE: 20190306
